FAERS Safety Report 16595264 (Version 1)
Quarter: 2019Q3

REPORT INFORMATION
  Report Type: Spontaneous
  Country: FR (occurrence: FR)
  Receive Date: 20190718
  Receipt Date: 20190718
  Transmission Date: 20191004
  Serious: Yes (Hospitalization, Other)
  Sender: FDA-Public Use
  Company Number: FR-AUROBINDO-AUR-APL-2019-041333

PATIENT

DRUGS (6)
  1. AMIODARONE [Suspect]
     Active Substance: AMIODARONE
     Indication: VENTRICULAR TACHYCARDIA
     Dosage: 20 MICROGRAM, DAILY
     Route: 048
  2. PREVISCAN (FLUINDIONE) [Suspect]
     Active Substance: FLUINDIONE
     Indication: CORONARY ARTERY DISEASE
     Dosage: 0.25 DOSAGE FORM, DAILY
     Route: 048
     Dates: end: 20180522
  3. FUROSEMIDE. [Suspect]
     Active Substance: FUROSEMIDE
     Indication: HYPERTENSION
     Dosage: 40 MILLIGRAM, DAILY
     Route: 048
  4. BISOPROLOL FUMARATE. [Concomitant]
     Active Substance: BISOPROLOL FUMARATE
     Indication: HYPERTENSION
     Dosage: 5 MICROGRAM, DAILY
     Route: 048
  5. THEOPHYLLINE [Suspect]
     Active Substance: THEOPHYLLINE ANHYDROUS
     Indication: BRONCHITIS CHRONIC
     Dosage: 200 MILLIGRAM, DAILY
     Route: 048
  6. AERIUS (DESLORATADINE) [Suspect]
     Active Substance: DESLORATADINE
     Indication: URTICARIA
     Dosage: 1 DOSAGE FORM, DAILY
     Route: 048

REACTIONS (2)
  - International normalised ratio increased [Recovered/Resolved]
  - Rectal haemorrhage [Recovered/Resolved]

NARRATIVE: CASE EVENT DATE: 20180521
